FAERS Safety Report 5328015-X (Version None)
Quarter: 2007Q2

REPORT INFORMATION
  Report Type: 
  Country: None (occurrence: None)
  Receive Date: 20070517
  Receipt Date: 20070509
  Transmission Date: 20071010
  Serious: Yes (Hospitalization)
  Sender: FDA-Public Use
  Company Number: GB-ABBOTT-07P-167-0367986-00

PATIENT
  Age: 20 Year
  Sex: Female

DRUGS (2)
  1. REDUCTIL [Suspect]
     Indication: OBESITY
     Dates: start: 20050701, end: 20060829
  2. EUGYNON [Concomitant]
     Indication: CONTRACEPTION

REACTIONS (1)
  - TRIGEMINAL NEURALGIA [None]
